FAERS Safety Report 24268506 (Version 2)
Quarter: 2024Q3

REPORT INFORMATION
  Report Type: Spontaneous
  Country: DE (occurrence: DE)
  Receive Date: 20240830
  Receipt Date: 20240903
  Transmission Date: 20241017
  Serious: Yes (Hospitalization)
  Sender: REGENERON
  Company Number: None

PATIENT
  Age: 80 Year
  Sex: Female

DRUGS (3)
  1. EYLEA [Suspect]
     Active Substance: AFLIBERCEPT
     Indication: Neovascular age-related macular degeneration
     Dosage: 1 DF, ONCE, SOLUTION FOR INJECTION IN PRE-FILLED SYRINGE, 40 MG/ML
     Route: 031
     Dates: start: 20240423, end: 20240423
  2. EYLEA [Suspect]
     Active Substance: AFLIBERCEPT
     Dosage: 1 DF, ONCE, SOLUTION FOR INJECTION IN PRE-FILLED SYRINGE, 40 MG/ML
     Route: 031
     Dates: start: 20240521, end: 20240521
  3. EYLEA [Suspect]
     Active Substance: AFLIBERCEPT
     Dosage: 1 DF, ONCE, SOLUTION FOR INJECTION IN PRE-FILLED SYRINGE, 40 MG/ML
     Route: 031
     Dates: start: 20240618, end: 20240618

REACTIONS (5)
  - Mobility decreased [Not Recovered/Not Resolved]
  - Gait disturbance [Not Recovered/Not Resolved]
  - Rheumatic disorder [Not Recovered/Not Resolved]
  - Musculoskeletal stiffness [Not Recovered/Not Resolved]
  - Myalgia [Not Recovered/Not Resolved]

NARRATIVE: CASE EVENT DATE: 20240427
